FAERS Safety Report 5529505-7 (Version None)
Quarter: 2007Q4

REPORT INFORMATION
  Report Type: 
  Country: None (occurrence: None)
  Receive Date: 20071129
  Receipt Date: 20071120
  Transmission Date: 20080405
  Serious: Yes (Other)
  Sender: FDA-Public Use
  Company Number: US-ELI_LILLY_AND_COMPANY-US200710007172

PATIENT
  Sex: Male
  Weight: 116.1 kg

DRUGS (8)
  1. HUMALOG [Suspect]
     Indication: DIABETES MELLITUS
  2. HUMALOG [Suspect]
     Dosage: UNK, OTHER SLIDING SCALE
     Dates: start: 20071102
  3. LANTUS [Concomitant]
     Dosage: 42 U, EACH MORNING
     Dates: start: 20050926
  4. DOXAZOSIN MESYLATE [Concomitant]
     Dosage: 4 MG, EACH EVENING
  5. DIOVAN [Concomitant]
  6. DOSTINEX [Concomitant]
     Dosage: 0.5 MG, WEEKLY (1/W)
  7. LEVITRA [Concomitant]
     Dosage: 10 MG, DAILY (1/D)
     Dates: start: 20061226
  8. CYANOCOBALAMIN [Concomitant]
     Dosage: 1000 UG, DAILY (1/D)

REACTIONS (7)
  - BLOOD CHLORIDE DECREASED [None]
  - BLOOD GLUCOSE DECREASED [None]
  - BLOOD GLUCOSE INCREASED [None]
  - CONVULSION [None]
  - HYPERGLYCAEMIA [None]
  - INJECTION SITE HAEMORRHAGE [None]
  - NEUROPATHY PERIPHERAL [None]
